FAERS Safety Report 5223856-1 (Version None)
Quarter: 2007Q1

REPORT INFORMATION
  Report Type: 
  Country: None (occurrence: None)
  Receive Date: 20070130
  Receipt Date: 20070119
  Transmission Date: 20070707
  Serious: Yes (Hospitalization, Disabling, Other)
  Sender: FDA-Public Use
  Company Number: PHBS2007NO00658

PATIENT
  Age: 80 Year
  Sex: Female

DRUGS (8)
  1. VOLTAREN [Suspect]
     Route: 048
  2. MORPHINE [Suspect]
     Route: 048
  3. NEURONTIN [Suspect]
     Dosage: 400 MG, 5QD
     Route: 048
  4. PARACET [Suspect]
     Route: 048
  5. LEVAXIN [Suspect]
     Route: 048
  6. SIMVASTATIN [Suspect]
     Dosage: 40 MG, QD
     Route: 048
  7. TEGRETOL [Suspect]
     Dosage: 100 MG, BID
     Route: 048
  8. WARFARIN SODIUM [Suspect]
     Indication: ATRIAL FIBRILLATION
     Dosage: 2.5 MG, 3 TO 4 TIMES/DAY
     Route: 048
     Dates: end: 20061130

REACTIONS (5)
  - CONUS MEDULLARIS SYNDROME [None]
  - DRUG INTERACTION [None]
  - PARAPLEGIA [None]
  - SPINAL EPIDURAL HAEMORRHAGE [None]
  - URINARY TRACT INFECTION [None]
